FAERS Safety Report 5283028-1 (Version None)
Quarter: 2007Q1

REPORT INFORMATION
  Report Type: 
  Country: None (occurrence: None)
  Receive Date: 20070328
  Receipt Date: 20070328
  Transmission Date: 20070707
  Serious: Yes (Hospitalization)
  Sender: FDA-Public Use
  Company Number: None

PATIENT
  Sex: Female
  Weight: 101.4 kg

DRUGS (2)
  1. CLOLAR [Suspect]
     Dosage: 82.8 MG
  2. CYTARABINE [Suspect]
     Dosage: 2070 MG

REACTIONS (6)
  - ACINETOBACTER INFECTION [None]
  - ACUTE RESPIRATORY DISTRESS SYNDROME [None]
  - BACTERIAL SEPSIS [None]
  - HAEMORRHAGE [None]
  - PULMONARY OEDEMA [None]
  - SERRATIA SEPSIS [None]
